FAERS Safety Report 21073878 (Version 1)
Quarter: 2022Q3

REPORT INFORMATION
  Report Type: Spontaneous
  Country: BA (occurrence: BA)
  Receive Date: 20220713
  Receipt Date: 20220713
  Transmission Date: 20221027
  Serious: Yes (Death, Hospitalization, Other)
  Sender: FDA-Public Use
  Company Number: BA-009507513-2207BIH002151

PATIENT
  Age: 50 Year
  Sex: Male

DRUGS (1)
  1. KEYTRUDA [Suspect]
     Active Substance: PEMBROLIZUMAB
     Indication: Metastases to central nervous system
     Dosage: UNK
     Dates: start: 20211206, end: 202203

REACTIONS (13)
  - Death [Fatal]
  - Malignant neoplasm progression [Unknown]
  - Thrombocytopenia [Unknown]
  - Leukopenia [Unknown]
  - Cerebral ischaemia [Unknown]
  - Malignant neoplasm progression [Unknown]
  - Cerebral haemorrhage [Unknown]
  - Granulocyte-colony stimulating factor level decreased [Unknown]
  - Peripheral swelling [Unknown]
  - Therapy partial responder [Unknown]
  - Alanine aminotransferase increased [Unknown]
  - Aspartate aminotransferase increased [Unknown]
  - Gamma-glutamyltransferase increased [Unknown]

NARRATIVE: CASE EVENT DATE: 20220401
